FAERS Safety Report 7224937-3 (Version None)
Quarter: 2011Q1

REPORT INFORMATION
  Report Type: 
  Country: None (occurrence: None)
  Receive Date: 20110113
  Receipt Date: 20101029
  Transmission Date: 20110831
  Serious: Yes (Death, Other)
  Sender: FDA-Public Use
  Company Number: CH-PFIZER INC-2011007571

PATIENT
  Age: 83 Year
  Sex: Female

DRUGS (10)
  1. CORDARONE [Interacting]
     Dosage: 200 MG, 1X/DAY
     Route: 048
     Dates: start: 20100831, end: 20100831
  2. ARIXTRA [Concomitant]
     Dosage: UNK
     Dates: start: 20100825, end: 20100827
  3. SINTROM [Interacting]
     Indication: PRODUCT USED FOR UNKNOWN INDICATION
     Dosage: 2 MG, SINGLE
     Dates: start: 20100825, end: 20100830
  4. AMIODARONE [Interacting]
     Dosage: 1200 MG, UNK
     Route: 042
     Dates: start: 20100901, end: 20100901
  5. PRAVASTATIN [Concomitant]
     Dosage: UNK
     Dates: start: 20100831
  6. BELOC ZOK [Concomitant]
     Dosage: UNK
     Dates: start: 20100825
  7. BUPRENORPHINE HYDROCHLORIDE [Concomitant]
     Dosage: UNK
     Dates: start: 20100824
  8. CORDARONE [Suspect]
     Indication: ATRIAL FIBRILLATION
     Dosage: 200 MG, 3X/DAY
     Route: 048
     Dates: start: 20100824, end: 20100830
  9. DOMPERIDONE [Concomitant]
     Dosage: UNK
     Dates: start: 20100826
  10. DAFALGAN [Concomitant]
     Dosage: UNK
     Dates: start: 20100824, end: 20100831

REACTIONS (6)
  - INTERNATIONAL NORMALISED RATIO INCREASED [None]
  - POST PROCEDURAL HAEMATOMA [None]
  - PERICARDIAL HAEMORRHAGE [None]
  - CARDIOGENIC SHOCK [None]
  - DRUG INTERACTION [None]
  - CARDIAC TAMPONADE [None]
